FAERS Safety Report 20456491 (Version 2)
Quarter: 2022Q2

REPORT INFORMATION
  Report Type: Report from Study
  Country: AU (occurrence: AU)
  Receive Date: 20220210
  Receipt Date: 20220502
  Transmission Date: 20220721
  Serious: Yes (Hospitalization, Other)
  Sender: FDA-Public Use
  Company Number: AU-BRISTOL-MYERS SQUIBB COMPANY-BMS-2022-008274

PATIENT
  Age: 75 Year
  Sex: Male
  Weight: 85.5 kg

DRUGS (2)
  1. NIVOLUMAB [Suspect]
     Active Substance: NIVOLUMAB
     Indication: Gastrooesophageal cancer
     Dosage: 240 MILLIGRAM
     Route: 042
     Dates: start: 20220110, end: 20220110
  2. REGORAFENIB [Suspect]
     Active Substance: REGORAFENIB
     Indication: Gastrooesophageal cancer
     Dosage: 90 MILLIGRAM
     Route: 048
     Dates: start: 20220110, end: 20220112

REACTIONS (1)
  - Malignant ascites [Unknown]

NARRATIVE: CASE EVENT DATE: 20220113
